FAERS Safety Report 7756888-X (Version None)
Quarter: 2011Q3

REPORT INFORMATION
  Report Type: 
  Country: None (occurrence: None)
  Receive Date: 20110916
  Receipt Date: 20110914
  Transmission Date: 20111222
  Serious: Yes (Hospitalization)
  Sender: FDA-Public Use
  Company Number: GB-GLAXOSMITHKLINE-A0890082B

PATIENT
  Sex: Male
  Weight: 79.6 kg

DRUGS (3)
  1. OFATUMUMAB [Suspect]
     Indication: CHRONIC LYMPHOCYTIC LEUKAEMIA
     Route: 042
     Dates: start: 20100923
  2. CHLORAMBUCIL [Suspect]
     Indication: CHRONIC LYMPHOCYTIC LEUKAEMIA
     Route: 048
     Dates: start: 20100924
  3. BLOOD TRANSFUSION [Concomitant]
     Indication: ANAEMIA
     Dosage: 2UNIT SINGLE DOSE
     Route: 042
     Dates: start: 20100924, end: 20100924

REACTIONS (3)
  - HEADACHE [None]
  - TREMOR [None]
  - DIZZINESS [None]
